FAERS Safety Report 14277148 (Version 1)
Quarter: 2017Q4

REPORT INFORMATION
  Report Type: Spontaneous
  Country: FR (occurrence: FR)
  Receive Date: 20171211
  Receipt Date: 20171211
  Transmission Date: 20180321
  Serious: Yes (Hospitalization, Other)
  Sender: FDA-Public Use
  Company Number: FR-OTSUKA-2016_019682

PATIENT
  Age: 15 Year
  Sex: Female

DRUGS (3)
  1. TERCIAN [Suspect]
     Active Substance: CYAMEMAZINE
     Indication: DELIRIUM
     Dosage: 35 MG, TID
     Route: 048
     Dates: start: 20160331, end: 20160407
  2. ABILIFY [Suspect]
     Active Substance: ARIPIPRAZOLE
     Indication: DELIRIUM
     Dosage: 5 MG, QD
     Route: 048
     Dates: start: 20160405, end: 20160407
  3. SULFARLEM [Suspect]
     Active Substance: ANETHOLTRITHION
     Indication: PROPHYLAXIS
     Dosage: 25 MG, BID
     Route: 048
     Dates: start: 20160404, end: 20160407

REACTIONS (4)
  - Gamma-glutamyltransferase increased [Recovering/Resolving]
  - Hepatocellular injury [Recovering/Resolving]
  - Off label use [Unknown]
  - Blood alkaline phosphatase increased [Recovering/Resolving]

NARRATIVE: CASE EVENT DATE: 20160408
